FAERS Safety Report 7180316-9 (Version None)
Quarter: 2010Q4

REPORT INFORMATION
  Report Type: 
  Country: None (occurrence: None)
  Receive Date: 20101221
  Receipt Date: 20101210
  Transmission Date: 20110411
  Serious: Yes (Hospitalization)
  Sender: FDA-Public Use
  Company Number: A0805442A

PATIENT
  Age: 42 Year
  Sex: Male

DRUGS (2)
  1. AVANDIA [Suspect]
     Dosage: 2MG THREE TIMES PER DAY
     Route: 048
     Dates: start: 20000101
  2. AVANDAMET [Suspect]
     Indication: DIABETES MELLITUS
     Route: 048

REACTIONS (3)
  - CARDIAC DISORDER [None]
  - CONGESTIVE CARDIOMYOPATHY [None]
  - VENTRICULAR TACHYCARDIA [None]
